FAERS Safety Report 5565949-5 (Version None)
Quarter: 2007Q4

REPORT INFORMATION
  Report Type: 
  Country: None (occurrence: None)
  Receive Date: 20071219
  Receipt Date: 20071205
  Transmission Date: 20080405
  Serious: Yes (Other)
  Sender: FDA-Public Use
  Company Number: ES-TEVA-164969ISR

PATIENT
  Age: 15 Year
  Sex: Female

DRUGS (3)
  1. ETOPOSIDE [Suspect]
     Indication: OVARIAN DYSGERMINOMA STAGE UNSPECIFIED
  2. CISPLATIN [Suspect]
     Indication: OVARIAN DYSGERMINOMA STAGE UNSPECIFIED
  3. BLEOMYCIN [Suspect]
     Indication: OVARIAN DYSGERMINOMA STAGE UNSPECIFIED

REACTIONS (6)
  - CEREBRAL VENOUS THROMBOSIS [None]
  - CONVULSION [None]
  - HEADACHE [None]
  - HEMIPLEGIA [None]
  - PAPILLOEDEMA [None]
  - QUADRIPARESIS [None]
